FAERS Safety Report 4870250-9 (Version None)
Quarter: 2006Q1

REPORT INFORMATION
  Report Type: 
  Country: None (occurrence: None)
  Receive Date: 20060102
  Receipt Date: 20051219
  Transmission Date: 20060701
  Serious: Yes (Other)
  Sender: FDA-Public Use
  Company Number: 2005AP06574

PATIENT
  Age: 12286 Day
  Sex: Female
  Weight: 57 kg

DRUGS (4)
  1. ANAPEINE [Suspect]
     Indication: EPIDURAL ANAESTHESIA
     Route: 008
     Dates: start: 20051216, end: 20051216
  2. ANAPEINE [Suspect]
     Indication: CAESAREAN SECTION
     Route: 008
     Dates: start: 20051216, end: 20051216
  3. MARCAINE [Concomitant]
     Indication: SPINAL ANAESTHESIA
     Route: 037
     Dates: start: 20051216, end: 20051216
  4. PROCAINE HYDROCHLORIDE INJ [Concomitant]
     Indication: LOCAL ANAESTHESIA
     Route: 058
     Dates: start: 20051216, end: 20051216

REACTIONS (7)
  - CONVULSION [None]
  - DEPRESSED LEVEL OF CONSCIOUSNESS [None]
  - DRUG TOXICITY [None]
  - DYSPNOEA [None]
  - FEELING ABNORMAL [None]
  - MUSCULOSKELETAL STIFFNESS [None]
  - SOMNOLENCE [None]
